FAERS Safety Report 12633243 (Version 2)
Quarter: 2016Q3

REPORT INFORMATION
  Report Type: Spontaneous
  Country: US (occurrence: US)
  Receive Date: 20160808
  Receipt Date: 20160808
  Transmission Date: 20161109
  Serious: No
  Sender: FDA-Public Use
  Company Number: US-BEH-2016059902

PATIENT
  Sex: Female
  Weight: 85 kg

DRUGS (19)
  1. CALCITONIN [Concomitant]
     Active Substance: CALCITONIN
  2. CELEXA [Concomitant]
     Active Substance: CITALOPRAM HYDROBROMIDE
  3. OCUVITE [Concomitant]
     Active Substance: VITAMINS
  4. HIZENTRA [Suspect]
     Active Substance: HUMAN IMMUNOGLOBULIN G
     Indication: IMMUNODEFICIENCY COMMON VARIABLE
     Route: 058
     Dates: start: 20141104
  5. DIPHENHYDRAMINE. [Concomitant]
     Active Substance: DIPHENHYDRAMINE
  6. FIBER [Concomitant]
     Active Substance: PSYLLIUM HUSK
  7. REFRESH [Concomitant]
     Active Substance: UNSPECIFIED INGREDIENT
  8. EPIPEN [Concomitant]
     Active Substance: EPINEPHRINE
  9. ALLERGY MEDICATION [Concomitant]
     Active Substance: DIPHENHYDRAMINE HYDROCHLORIDE
  10. METFORMIN [Concomitant]
     Active Substance: METFORMIN HYDROCHLORIDE
  11. SIMVASTATIN. [Concomitant]
     Active Substance: SIMVASTATIN
  12. LIDOCAINE. [Concomitant]
     Active Substance: LIDOCAINE
  13. OMEPRAZOLE. [Concomitant]
     Active Substance: OMEPRAZOLE
  14. CENTRUM COMPLETE [Concomitant]
  15. QUINAPRIL. [Concomitant]
     Active Substance: QUINAPRIL
  16. FUROSEMIDE. [Concomitant]
     Active Substance: FUROSEMIDE
  17. ALLERGY MEDICATION [Concomitant]
     Active Substance: DIPHENHYDRAMINE HYDROCHLORIDE
  18. TRAVATAN [Concomitant]
     Active Substance: TRAVOPROST
  19. OSTEO BI FLEX [Concomitant]

REACTIONS (1)
  - Fungal infection [Unknown]
